FAERS Safety Report 20170063 (Version 2)
Quarter: 2022Q1

REPORT INFORMATION
  Report Type: Spontaneous
  Country: IN (occurrence: IN)
  Receive Date: 20211210
  Receipt Date: 20220118
  Transmission Date: 20220424
  Serious: Yes (Other)
  Sender: FDA-Public Use
  Company Number: IN-PFIZER INC-202101676997

PATIENT
  Age: 73 Year
  Sex: Male
  Weight: 61.7 kg

DRUGS (2)
  1. SUTENT [Suspect]
     Active Substance: SUNITINIB MALATE
     Indication: Renal cell carcinoma
     Dosage: 37.5 MG, 1X/DAY
     Route: 048
     Dates: start: 20211119
  2. SUTENT [Suspect]
     Active Substance: SUNITINIB MALATE
     Dosage: 37.5 MG, 1X/DAY
     Route: 048

REACTIONS (2)
  - Vena cava thrombosis [Unknown]
  - Nephrectomy [Unknown]
